FAERS Safety Report 8907083 (Version 2)
Quarter: 2014Q4

REPORT INFORMATION
  Report Type: Spontaneous
  Country: US (occurrence: US)
  Receive Date: 20121114
  Receipt Date: 20141212
  Transmission Date: 20150529
  Serious: Yes (Other)
  Sender: FDA-Public Use
  Company Number: US-BAYER-2012-116828

PATIENT
  Age: 46 Year
  Sex: Female

DRUGS (10)
  1. VISTARIL [Suspect]
     Active Substance: HYDROXYZINE PAMOATE
     Dosage: 3 DAILY
     Dates: end: 20121111
  2. ULTRAVIST [Suspect]
     Active Substance: IOPROMIDE
     Indication: COMPUTERISED TOMOGRAM
     Dosage: LEFT ARM
     Route: 042
     Dates: start: 20121025, end: 20121025
  3. VISTARIL [Suspect]
     Active Substance: HYDROXYZINE PAMOATE
     Dosage: 25 MG, BID
     Dates: start: 20121101
  4. VISTARIL [Suspect]
     Active Substance: HYDROXYZINE PAMOATE
     Dosage: 25 MG, UNK
  5. VISTARIL [Suspect]
     Active Substance: HYDROXYZINE PAMOATE
     Dosage: 1 DF, UNK
     Dates: start: 20121115, end: 20121115
  6. GABAPENTIN. [Concomitant]
     Active Substance: GABAPENTIN
     Indication: BURNING SENSATION
     Dosage: 6 PILLS
     Dates: start: 20121117, end: 20121118
  7. GABAPENTIN. [Concomitant]
     Active Substance: GABAPENTIN
     Indication: BURNING SENSATION
     Dosage: 100 MG, UNK
  8. GABAPENTIN. [Concomitant]
     Active Substance: GABAPENTIN
     Indication: ANORECTAL DISCOMFORT
     Dosage: 4 DAILY
     Dates: end: 20121111
  9. VISTARIL [Suspect]
     Active Substance: HYDROXYZINE PAMOATE
     Dosage: 3 PILLS
     Dates: start: 20121117, end: 20121118
  10. GABAPENTIN. [Concomitant]
     Active Substance: GABAPENTIN
     Indication: BURNING SENSATION
     Dosage: 1 PILL
     Dates: start: 20121115, end: 20121115

REACTIONS (27)
  - Injection site urticaria [Recovered/Resolved]
  - Vulvovaginal burning sensation [Not Recovered/Not Resolved]
  - Erythema [None]
  - Urticaria [Recovered/Resolved]
  - Tremor [None]
  - Anorectal discomfort [Not Recovered/Not Resolved]
  - Nervousness [None]
  - Eye pain [None]
  - Weight decreased [None]
  - Suicidal ideation [None]
  - Joint injury [None]
  - Arthralgia [None]
  - Complex regional pain syndrome [Not Recovered/Not Resolved]
  - Nausea [None]
  - Feeling hot [Not Recovered/Not Resolved]
  - Rash [Recovered/Resolved]
  - Pain [Not Recovered/Not Resolved]
  - Ocular hyperaemia [None]
  - Feeling abnormal [None]
  - Burning sensation [Not Recovered/Not Resolved]
  - Eye irritation [None]
  - Somnolence [None]
  - Flushing [Not Recovered/Not Resolved]
  - Pain in extremity [Not Recovered/Not Resolved]
  - Insomnia [None]
  - Feeling cold [Not Recovered/Not Resolved]
  - Back pain [None]

NARRATIVE: CASE EVENT DATE: 20121025
